FAERS Safety Report 19387024 (Version 1)
Quarter: 2021Q2

REPORT INFORMATION
  Report Type: Spontaneous
  Country: FR (occurrence: FR)
  Receive Date: 20210607
  Receipt Date: 20210607
  Transmission Date: 20210717
  Serious: Yes (Hospitalization)
  Sender: FDA-Public Use
  Company Number: FR-GILEAD-2021-0533988

PATIENT
  Age: 76 Year
  Sex: Female

DRUGS (10)
  1. INDIGOTINE [Concomitant]
  2. AMIDON [Concomitant]
  3. CROSCARMELLOSE SODIUM. [Concomitant]
     Active Substance: CROSCARMELLOSE SODIUM
  4. CELLULOSE MICROCRYSTALLINE [Concomitant]
  5. HYPROMELLOSE [Concomitant]
     Active Substance: HYPROMELLOSES
  6. TITANIUM DIOXIDE. [Concomitant]
     Active Substance: TITANIUM DIOXIDE
  7. GLYCEROL [Concomitant]
     Active Substance: GLYCERIN
  8. MAGNESIUM STEARATE [Concomitant]
     Active Substance: MAGNESIUM STEARATE
  9. VIREAD [Suspect]
     Active Substance: TENOFOVIR DISOPROXIL FUMARATE
     Indication: VIRAL HEPATITIS CARRIER
     Route: 048
     Dates: start: 202005, end: 202103
  10. LACTOSE MONOHYDRATE [Concomitant]
     Active Substance: LACTOSE MONOHYDRATE

REACTIONS (5)
  - Acidosis [Recovering/Resolving]
  - Glycosuria [Recovering/Resolving]
  - Hypercreatininaemia [Recovering/Resolving]
  - Proteinuria [Recovering/Resolving]
  - Blood phosphorus decreased [Recovering/Resolving]

NARRATIVE: CASE EVENT DATE: 2020
